FAERS Safety Report 22119462 (Version 1)
Quarter: 2023Q1

REPORT INFORMATION
  Report Type: Other
  Country: JP (occurrence: None)
  Receive Date: 20230321
  Receipt Date: 20230321
  Transmission Date: 20230418
  Serious: Yes (Hospitalization)
  Sender: FDA-Public Use
  Company Number: JP-ROCHE-3313904

PATIENT
  Age: 7 Year
  Sex: Male

DRUGS (1)
  1. RITUXAN [Suspect]
     Active Substance: RITUXIMAB
     Indication: Nephrotic syndrome
     Dosage: HE RECEIVED LAST DOSE FOUR MONTHS PREVIOUSLY
     Route: 041

REACTIONS (1)
  - COVID-19 [Unknown]
